FAERS Safety Report 21661101 (Version 1)
Quarter: 2022Q4

REPORT INFORMATION
  Report Type: Spontaneous
  Country: FR (occurrence: FR)
  Receive Date: 20221130
  Receipt Date: 20221130
  Transmission Date: 20230113
  Serious: Yes (Other)
  Sender: FDA-Public Use
  Company Number: None

PATIENT
  Age: 35 Year
  Sex: Male
  Weight: 79 kg

DRUGS (2)
  1. BUPRENORPHINE [Interacting]
     Active Substance: BUPRENORPHINE
     Indication: Drug dependence
     Dosage: AU LONG COURS
     Route: 048
  2. NALMEFENE HYDROCHLORIDE DIHYDRATE [Interacting]
     Active Substance: NALMEFENE HYDROCHLORIDE DIHYDRATE
     Indication: Alcoholism
     Route: 048
     Dates: start: 20221109, end: 20221109

REACTIONS (5)
  - Drug withdrawal syndrome [Recovered/Resolved]
  - Contraindicated product prescribed [Recovered/Resolved]
  - Product prescribing error [Recovered/Resolved]
  - Contraindicated product administered [Recovered/Resolved]
  - Product dispensing error [Recovered/Resolved]

NARRATIVE: CASE EVENT DATE: 20221109
